FAERS Safety Report 5034527-9 (Version None)
Quarter: 2006Q2

REPORT INFORMATION
  Report Type: 
  Country: None (occurrence: None)
  Receive Date: 20060623
  Receipt Date: 20060623
  Transmission Date: 20061013
  Serious: No
  Sender: FDA-Public Use
  Company Number: None

PATIENT
  Age: 69 Year
  Sex: Female

DRUGS (3)
  1. PREDNISOLONE ACETATE [Suspect]
     Dosage: 1 DROP IN THE AFFECTED EYE(S) FOUR TIMES A DAY
     Route: 047
     Dates: start: 20060323, end: 20060505
  2. PREDNISOLONE ACETATE [Suspect]
     Dosage: 1 DROP IN THE AFFECTED EYE(S) FOUR TIMES A DAY
     Route: 047
     Dates: start: 20060508, end: 20060510
  3. PREDNISOLONE ACETATE [Suspect]
     Dosage: 1 DROP IN THE AFFECTED EYE(S) FOUR TIMES A DAY
     Route: 047
     Dates: end: 20060511

REACTIONS (3)
  - EYE IRRITATION [None]
  - EYE PAIN [None]
  - PHARMACEUTICAL PRODUCT COMPLAINT [None]
